FAERS Safety Report 20481569 (Version 2)
Quarter: 2022Q1

REPORT INFORMATION
  Report Type: Report from Study
  Country: US (occurrence: US)
  Receive Date: 20220216
  Receipt Date: 20220217
  Transmission Date: 20220423
  Serious: Yes (Death)
  Sender: FDA-Public Use
  Company Number: US-PFIZER INC-202200258037

PATIENT
  Age: 72 Year
  Sex: Male
  Weight: 69.7 kg

DRUGS (4)
  1. UNSPECIFIED INGREDIENT [Suspect]
     Active Substance: UNSPECIFIED INGREDIENT
     Dosage: NO DOSE GIVEN
  2. APIXABAN [Concomitant]
     Active Substance: APIXABAN
     Dosage: 5 MG
     Route: 048
  3. SOTALOL [Concomitant]
     Active Substance: SOTALOL
     Dosage: 80 MG, TWICE A DAY
     Route: 048
     Dates: end: 202202
  4. LORATADINE [Concomitant]
     Active Substance: LORATADINE
     Dosage: 10 MG, DAILY
     Route: 048

REACTIONS (1)
  - Neoplasm progression [Fatal]

NARRATIVE: CASE EVENT DATE: 20220210
